FAERS Safety Report 6178717-0 (Version None)
Quarter: 2009Q2

REPORT INFORMATION
  Report Type: 
  Country: None (occurrence: None)
  Receive Date: 20090430
  Receipt Date: 20090416
  Transmission Date: 20091009
  Serious: Yes (Death)
  Sender: FDA-Public Use
  Company Number: 2009PL000171

PATIENT
  Age: 68 Year
  Sex: Male

DRUGS (5)
  1. AZATHIOPRINE [Suspect]
     Indication: IDIOPATHIC PULMONARY FIBROSIS
     Dosage: 100 MG; QD; PO
     Route: 048
     Dates: start: 20081122, end: 20090123
  2. PIRFENIDONE (NO PREF. NAME) [Suspect]
     Indication: IDIOPATHIC PULMONARY FIBROSIS
     Dosage: QD; PO
     Route: 048
     Dates: start: 20081217, end: 20090212
  3. PREDONINE /00016201/ (CON.) [Concomitant]
  4. BAKTAR (CON.) [Concomitant]
  5. MEDICON /00048102/ (CON.) [Concomitant]

REACTIONS (1)
  - ANOREXIA [None]
